FAERS Safety Report 22197216 (Version 2)
Quarter: 2023Q2

REPORT INFORMATION
  Report Type: Spontaneous
  Country: US (occurrence: US)
  Receive Date: 20230411
  Receipt Date: 20230511
  Transmission Date: 20230722
  Serious: No
  Sender: FDA-Public Use
  Company Number: US-PFIZER INC-PV202300065543

PATIENT
  Age: 89 Year
  Sex: Female
  Weight: 77.098 kg

DRUGS (1)
  1. IBRANCE [Suspect]
     Active Substance: PALBOCICLIB
     Indication: Neoplasm malignant
     Dosage: 125 MG, CYCLIC (21 DAYS, 7 DAYS OFF)
     Dates: start: 202210

REACTIONS (1)
  - Dysgraphia [Unknown]
